FAERS Safety Report 5132959-1 (Version None)
Quarter: 2006Q4

REPORT INFORMATION
  Report Type: 
  Country: None (occurrence: None)
  Receive Date: 20061016
  Receipt Date: 20060930
  Transmission Date: 20070319
  Serious: Yes (Hospitalization)
  Sender: FDA-Public Use
  Company Number: ENTC2006-0294

PATIENT
  Age: 85 Year
  Sex: Female

DRUGS (5)
  1. STALEVO 100 [Suspect]
     Indication: PARKINSON'S DISEASE
     Dosage: 2 OR 3 DF ORAL; 3 OR 4 DF ORAL
     Route: 048
     Dates: start: 20050101, end: 20060301
  2. STALEVO 100 [Suspect]
     Indication: PARKINSON'S DISEASE
     Dosage: 2 OR 3 DF ORAL; 3 OR 4 DF ORAL
     Route: 048
     Dates: start: 20060301, end: 20060623
  3. GUTRON [Suspect]
     Dosage: ORAL
     Route: 048
     Dates: end: 20060623
  4. ASPIRIN [Concomitant]
  5. CACIT D3 [Concomitant]

REACTIONS (5)
  - DISTURBANCE IN ATTENTION [None]
  - DYSPHAGIA [None]
  - DYSPNOEA [None]
  - PNEUMONIA ASPIRATION [None]
  - SOMNOLENCE [None]
